APPROVED DRUG PRODUCT: PREMARIN
Active Ingredient: ESTROGENS, CONJUGATED
Strength: 25MG/VIAL
Dosage Form/Route: INJECTABLE;INJECTION
Application: N010402 | Product #001
Applicant: WYETH PHARMACEUTICALS LLC
Approved: Approved Prior to Jan 1, 1982 | RLD: Yes | RS: Yes | Type: RX